FAERS Safety Report 19482201 (Version 12)
Quarter: 2025Q2

REPORT INFORMATION
  Report Type: Report from Study
  Country: CA (occurrence: CA)
  Receive Date: 20210701
  Receipt Date: 20250528
  Transmission Date: 20250717
  Serious: Yes (Other)
  Sender: TAKEDA
  Company Number: CA-TAKEDA-2021TUS032051

PATIENT
  Sex: Female

DRUGS (10)
  1. VEDOLIZUMAB [Suspect]
     Active Substance: VEDOLIZUMAB
     Indication: Crohn^s disease
  2. VEDOLIZUMAB [Suspect]
     Active Substance: VEDOLIZUMAB
  3. VEDOLIZUMAB [Suspect]
     Active Substance: VEDOLIZUMAB
  4. VEDOLIZUMAB [Suspect]
     Active Substance: VEDOLIZUMAB
     Dates: start: 20250210, end: 20250321
  5. VEDOLIZUMAB [Suspect]
     Active Substance: VEDOLIZUMAB
     Indication: Crohn^s disease
     Dosage: 108 MILLIGRAM, Q2WEEKS
     Dates: start: 20220601
  6. VEDOLIZUMAB [Suspect]
     Active Substance: VEDOLIZUMAB
     Dosage: 108 MILLIGRAM, Q2WEEKS
  7. STELARA [Concomitant]
     Active Substance: USTEKINUMAB
     Dosage: UNK UNK, MONTHLY
     Dates: start: 202007
  8. MESALAMINE [Concomitant]
     Active Substance: MESALAMINE
     Dosage: 4.8 GRAM, QD
  9. PROLIA [Concomitant]
     Active Substance: DENOSUMAB
  10. LIPITOR [Concomitant]
     Active Substance: ATORVASTATIN CALCIUM

REACTIONS (12)
  - Crohn^s disease [Unknown]
  - Stress [Unknown]
  - Sleep disorder [Unknown]
  - Oral mucosal blistering [Unknown]
  - Therapeutic reaction time decreased [Unknown]
  - Injection site extravasation [Unknown]
  - Product dose omission issue [Unknown]
  - Device issue [Unknown]
  - Malaise [Unknown]
  - Flatulence [Unknown]
  - Fatigue [Unknown]
  - Pyrexia [Unknown]
